FAERS Safety Report 14471633 (Version 2)
Quarter: 2018Q4

REPORT INFORMATION
  Report Type: Report from Study
  Country: GB (occurrence: GB)
  Receive Date: 20180131
  Receipt Date: 20181115
  Transmission Date: 20190204
  Serious: Yes (Other)
  Sender: FDA-Public Use
  Company Number: GB-BAYER-2018-014546

PATIENT
  Age: 21 Year
  Sex: Female
  Weight: 62.1 kg

DRUGS (2)
  1. MIRENA [Suspect]
     Active Substance: LEVONORGESTREL
     Indication: CONTRACEPTION
     Dosage: 20 MCG/24HR, CONT
     Route: 015
     Dates: start: 20161108, end: 20170518
  2. LEVOTHYROXINE. [Concomitant]
     Active Substance: LEVOTHYROXINE

REACTIONS (6)
  - Contraindicated device used [None]
  - Preterm premature rupture of membranes [None]
  - Premature delivery [None]
  - Pregnancy with contraceptive device [None]
  - Medical device monitoring error [None]
  - Device expulsion [None]

NARRATIVE: CASE EVENT DATE: 20161108
